FAERS Safety Report 8573429-8 (Version None)
Quarter: 2012Q3

REPORT INFORMATION
  Report Type: 
  Country: None (occurrence: None)
  Receive Date: 20120806
  Receipt Date: 20120731
  Transmission Date: 20120928
  Serious: Yes (Hospitalization, Other)
  Sender: FDA-Public Use
  Company Number: BR-PFIZER INC-2012186499

PATIENT
  Age: 80 Year
  Sex: Male

DRUGS (4)
  1. OLMESARTAN MEDOXOMIL AND HYDROCHLOROTHIZIDE [Concomitant]
     Dosage: UNK
     Dates: start: 20100325
  2. IBUPROFEN (ADVIL) [Suspect]
     Indication: ANTIINFLAMMATORY THERAPY
     Route: 048
  3. MAREVAN ^NYCOMED^ [Concomitant]
     Indication: ANTICOAGULANT THERAPY
     Dosage: 5 MG, 1X/DAY
  4. XALATAN [Concomitant]
     Dosage: ONE DROP IN EACH EYE, ONCE DAILY
     Dates: start: 20080716

REACTIONS (12)
  - DIABETES MELLITUS [None]
  - GAIT DISTURBANCE [None]
  - FEELING ABNORMAL [None]
  - CONFUSIONAL STATE [None]
  - CONTRAINDICATION TO MEDICAL TREATMENT [None]
  - HAEMORRHAGE [None]
  - SPEECH DISORDER [None]
  - FLUID RETENTION [None]
  - COMA [None]
  - CARDIAC DISORDER [None]
  - THROMBOSIS [None]
  - DELIRIUM [None]
